FAERS Safety Report 7561027-4 (Version None)
Quarter: 2011Q2

REPORT INFORMATION
  Report Type: 
  Country: None (occurrence: None)
  Receive Date: 20110621
  Receipt Date: 20110128
  Transmission Date: 20111010
  Serious: No
  Sender: FDA-Public Use
  Company Number: US-ASTRAZENECA-2008UW19472

PATIENT
  Sex: Female
  Weight: 81.6 kg

DRUGS (6)
  1. HORMONES [Concomitant]
  2. ATACAND [Suspect]
     Route: 048
  3. ATACAND HCT [Suspect]
     Indication: HYPERTENSION
     Dosage: 16/12.5, ONE OR 1/2 TABLET DAILY
     Route: 048
     Dates: start: 20071205
  4. TOPROL-XL [Suspect]
     Route: 048
  5. NEXIUM [Suspect]
     Route: 048
  6. THYROID TAB [Concomitant]

REACTIONS (6)
  - BLOOD PRESSURE DECREASED [None]
  - DRUG DOSE OMISSION [None]
  - COUGH [None]
  - EPISTAXIS [None]
  - DRUG INTOLERANCE [None]
  - ASTHENIA [None]
